FAERS Safety Report 7762134-3 (Version None)
Quarter: 2011Q3

REPORT INFORMATION
  Report Type: 
  Country: None (occurrence: None)
  Receive Date: 20110920
  Receipt Date: 20110908
  Transmission Date: 20111222
  Serious: Yes (Other)
  Sender: FDA-Public Use
  Company Number: BR-JNJFOC-20110906162

PATIENT
  Age: 58 Year
  Sex: Female
  Weight: 89 kg

DRUGS (8)
  1. CORTISONE ACETATE [Concomitant]
     Route: 065
  2. REMICADE [Suspect]
     Route: 042
     Dates: end: 20110801
  3. ACETAMINOPHEN [Concomitant]
     Indication: ARTHRALGIA
     Route: 048
  4. AMLODIPINE BESYLATE [Concomitant]
     Indication: HYPERTENSION
     Route: 048
  5. MODURETIC 5-50 [Concomitant]
     Indication: HYPERTENSION
     Route: 048
  6. LOSARTAN POTASSIUM [Concomitant]
     Indication: HYPERTENSION
     Route: 065
  7. REMICADE [Suspect]
     Indication: PSORIATIC ARTHROPATHY
     Route: 042
  8. OMEPRAZOLE [Concomitant]
     Indication: GASTROINTESTINAL DISORDER
     Route: 065

REACTIONS (7)
  - NERVOUSNESS [None]
  - ANKLE OPERATION [None]
  - PSORIASIS [None]
  - BLOOD GLUCOSE ABNORMAL [None]
  - ARTHRALGIA [None]
  - PRURITUS [None]
  - CHOLELITHIASIS [None]
